FAERS Safety Report 20133597 (Version 2)
Quarter: 2021Q4

REPORT INFORMATION
  Report Type: Spontaneous
  Country: PT (occurrence: PT)
  Receive Date: 20211201
  Receipt Date: 20211203
  Transmission Date: 20220303
  Serious: No
  Sender: FDA-Public Use
  Company Number: PT-AUROBINDO-AUR-APL-2021-045658

PATIENT
  Age: 90 Year
  Sex: Male

DRUGS (5)
  1. ERTAPENEM SODIUM [Suspect]
     Active Substance: ERTAPENEM SODIUM
     Indication: Klebsiella infection
     Dosage: UNK
     Route: 065
  2. FLUCONAZOLE [Concomitant]
     Active Substance: FLUCONAZOLE
     Indication: Klebsiella infection
     Dosage: 100 MILLIGRAM, QD
  3. FLUCONAZOLE [Concomitant]
     Active Substance: FLUCONAZOLE
     Dosage: 400 MILLIGRAM, QD
  4. LINEZOLID [Concomitant]
     Active Substance: LINEZOLID
     Indication: Klebsiella infection
     Dosage: UNK
  5. PIPERACILLIN AND TAZOBACTAM [Concomitant]
     Active Substance: PIPERACILLIN SODIUM\TAZOBACTAM SODIUM
     Indication: Pneumonia
     Dosage: UNK

REACTIONS (1)
  - Product use in unapproved indication [Unknown]
